FAERS Safety Report 9157494 (Version 1)
Quarter: 2013Q1

REPORT INFORMATION
  Report Type: Spontaneous
  Country: US (occurrence: US)
  Receive Date: 20130312
  Receipt Date: 20130312
  Transmission Date: 20140127
  Serious: Yes (Other)
  Sender: FDA-Public Use
  Company Number: US-PURDUE-USA-2013-0099689

PATIENT
  Age: 44 Year
  Sex: Female

DRUGS (6)
  1. BUTRANS [Suspect]
     Indication: PAIN
     Dosage: 10 MCG/HR, DAILY
     Route: 062
  2. BUTRANS [Suspect]
     Dosage: 5 MCG/HR, DAILY
     Route: 062
  3. NERVE BLOCK INJECTIONS [Suspect]
     Indication: PAIN
  4. LORTAB                             /00607101/ [Concomitant]
     Indication: PRODUCT USED FOR UNKNOWN INDICATION
     Dosage: UNK, TID
  5. FLEXERIL                           /00428402/ [Concomitant]
     Indication: PRODUCT USED FOR UNKNOWN INDICATION
  6. LYRICA [Concomitant]
     Indication: PRODUCT USED FOR UNKNOWN INDICATION
     Dosage: UNK, BID

REACTIONS (9)
  - Hypokinesia [Unknown]
  - Pain [Unknown]
  - Loss of consciousness [Recovered/Resolved]
  - Hypoaesthesia [Unknown]
  - Amnesia [Unknown]
  - Fall [Recovered/Resolved]
  - Drug ineffective [Unknown]
  - Product adhesion issue [Unknown]
  - Drug hypersensitivity [Unknown]
